FAERS Safety Report 6028614-6 (Version None)
Quarter: 2009Q1

REPORT INFORMATION
  Report Type: 
  Country: None (occurrence: None)
  Receive Date: 20090106
  Receipt Date: 20081201
  Transmission Date: 20090719
  Serious: Yes (Hospitalization, Other)
  Sender: FDA-Public Use
  Company Number: JP-PFIZER INC-2008084765

PATIENT

DRUGS (1)
  1. CHAMPIX [Suspect]
     Route: 048
     Dates: start: 20080705, end: 20080906

REACTIONS (5)
  - DIZZINESS [None]
  - DIZZINESS POSTURAL [None]
  - GAIT DISTURBANCE [None]
  - HYPERTENSION [None]
  - MENIERE'S DISEASE [None]
